FAERS Safety Report 6717019-8 (Version None)
Quarter: 2010Q2

REPORT INFORMATION
  Report Type: 
  Country: None (occurrence: None)
  Receive Date: 20100510
  Receipt Date: 20100503
  Transmission Date: 20101027
  Serious: Yes (Other)
  Sender: FDA-Public Use
  Company Number: SE-JNJFOC-20100500109

PATIENT
  Sex: Male

DRUGS (3)
  1. CONCERTA [Suspect]
     Indication: DRUG USE FOR UNKNOWN INDICATION
     Route: 065
  2. LYRICA [Suspect]
     Indication: DRUG USE FOR UNKNOWN INDICATION
     Dosage: 50 MG IN THE MORNING PLUS 300 MG IN THE EVENING
     Route: 065
  3. LYRICA [Suspect]
     Route: 065

REACTIONS (6)
  - ATAXIA [None]
  - COORDINATION ABNORMAL [None]
  - DECREASED APPETITE [None]
  - HALLUCINATION, VISUAL [None]
  - INSOMNIA [None]
  - WEIGHT DECREASED [None]
